FAERS Safety Report 7868074-3 (Version None)
Quarter: 2011Q4

REPORT INFORMATION
  Report Type: 
  Country: None (occurrence: None)
  Receive Date: 20111028
  Receipt Date: 20111026
  Transmission Date: 20120403
  Serious: Yes (Other)
  Sender: FDA-Public Use
  Company Number: US-PFIZER INC-2011261959

PATIENT
  Sex: Female
  Weight: 58.957 kg

DRUGS (10)
  1. GEODON [Suspect]
     Indication: BIPOLAR I DISORDER
     Dosage: 40 MG, 2X/DAY
     Route: 048
     Dates: start: 20080101
  2. LYRICA [Concomitant]
     Indication: MUSCULOSKELETAL DISCOMFORT
     Dosage: 50 MG, 1X/DAY
  3. SYNTHROID [Concomitant]
     Indication: THYROID DISORDER
     Dosage: 50 MG, UNK
  4. ELMIRON [Concomitant]
     Dosage: UNK
  5. SANCTURA XR [Concomitant]
     Dosage: 60 MG, 1X/DAY
  6. ARMODAFINIL [Concomitant]
     Indication: DEPRESSION
     Dosage: 250 MG, 3X/DAY
  7. PROZAC [Concomitant]
     Indication: CYSTITIS INTERSTITIAL
     Dosage: UNK, AS NEEDED
  8. GEODON [Suspect]
     Dosage: 20 MG, 1X/DAY
     Dates: start: 20111025
  9. GEODON [Suspect]
     Dosage: 40 MG, 1X/DAY
     Dates: start: 20090101
  10. LAMICTAL [Concomitant]
     Dosage: 200 MG, 1X/DAY

REACTIONS (3)
  - ARRHYTHMIA [None]
  - WHITE BLOOD CELL COUNT DECREASED [None]
  - CATARACT [None]
